FAERS Safety Report 20421913 (Version 2)
Quarter: 2022Q1

REPORT INFORMATION
  Report Type: Spontaneous
  Country: CN (occurrence: CN)
  Receive Date: 20220203
  Receipt Date: 20220224
  Transmission Date: 20220423
  Serious: Yes (Other)
  Sender: FDA-Public Use
  Company Number: CN-PFIZER INC-202200010873

PATIENT
  Age: 74 Year
  Sex: Male

DRUGS (5)
  1. VFEND [Suspect]
     Active Substance: VORICONAZOLE
     Indication: Aspergillus infection
     Dosage: 6 MG/KG, Q12 FOR THE FIRST DAY
     Dates: start: 20211231, end: 20211231
  2. VFEND [Suspect]
     Active Substance: VORICONAZOLE
     Dosage: 4 MG/KG, Q12
     Dates: start: 20220101, end: 20220104
  3. CEFOPERAZONE SODIUM\SULBACTAM SODIUM [Suspect]
     Active Substance: CEFOPERAZONE SODIUM\SULBACTAM SODIUM
     Indication: Asthma
     Dosage: UNK
     Dates: end: 20220103
  4. SOLU-MEDROL [Suspect]
     Active Substance: METHYLPREDNISOLONE SODIUM SUCCINATE
     Indication: Asthma
     Dosage: UNK
     Dates: end: 20220103
  5. AMINOPHYLLINE [Suspect]
     Active Substance: AMINOPHYLLINE
     Indication: Asthma
     Dosage: UNK
     Dates: end: 20220103

REACTIONS (7)
  - Gaze palsy [Unknown]
  - Hallucination [Recovering/Resolving]
  - Delirium [Recovering/Resolving]
  - Mania [Unknown]
  - Visual impairment [Unknown]
  - Irritability [Recovering/Resolving]
  - Disorganised speech [Recovering/Resolving]

NARRATIVE: CASE EVENT DATE: 20220102
